FAERS Safety Report 16813737 (Version 2)
Quarter: 2019Q4

REPORT INFORMATION
  Report Type: Report from Study
  Country: US (occurrence: US)
  Receive Date: 20190917
  Receipt Date: 20191014
  Transmission Date: 20200122
  Serious: Yes (Hospitalization, Other)
  Sender: FDA-Public Use
  Company Number: US-SHIRE-US201930398

PATIENT
  Age: 56 Year
  Sex: Male
  Weight: 76.19 kg

DRUGS (9)
  1. TAKHZYRO [Suspect]
     Active Substance: LANADELUMAB-FLYO
     Indication: IMMUNE SYSTEM DISORDER
     Dosage: 300 MILLIGRAM, 1X/2WKS
     Route: 058
     Dates: start: 20170509
  2. FELBAMATE. [Concomitant]
     Active Substance: FELBAMATE
     Indication: PRODUCT USED FOR UNKNOWN INDICATION
  3. TAKHZYRO [Suspect]
     Active Substance: LANADELUMAB-FLYO
     Dosage: 300 MILLIGRAM, 1X/2WKS
     Route: 058
     Dates: start: 20181120
  4. FIRAZYR [Suspect]
     Active Substance: ICATIBANT ACETATE
     Dosage: 3ML/30MG, AS REQ^D
     Route: 058
     Dates: start: 20160810
  5. ATIVAN [Concomitant]
     Active Substance: LORAZEPAM
     Indication: PRODUCT USED FOR UNKNOWN INDICATION
  6. FIRAZYR [Suspect]
     Active Substance: ICATIBANT ACETATE
     Indication: IMMUNE SYSTEM DISORDER
     Dosage: 3ML/30MG, AS REQ^D
     Route: 058
     Dates: start: 20160524
  7. LOSARTAN/HCTZ [Concomitant]
     Active Substance: HYDROCHLOROTHIAZIDE\LOSARTAN
     Indication: PRODUCT USED FOR UNKNOWN INDICATION
  8. ZANTAC [Concomitant]
     Active Substance: RANITIDINE HYDROCHLORIDE
     Indication: PRODUCT USED FOR UNKNOWN INDICATION
  9. XYZAL [Concomitant]
     Active Substance: LEVOCETIRIZINE DIHYDROCHLORIDE
     Indication: PRODUCT USED FOR UNKNOWN INDICATION

REACTIONS (2)
  - Hereditary angioedema [Recovering/Resolving]
  - Epilepsy [Unknown]

NARRATIVE: CASE EVENT DATE: 20190911
